FAERS Safety Report 25192006 (Version 1)
Quarter: 2025Q2

REPORT INFORMATION
  Report Type: Spontaneous
  Country: SK (occurrence: SK)
  Receive Date: 20250414
  Receipt Date: 20250414
  Transmission Date: 20250717
  Serious: Yes (Death, Other)
  Sender: AMGEN
  Company Number: SK-AMGEN-SVKSP2025070611

PATIENT

DRUGS (1)
  1. IVABRADINE [Suspect]
     Active Substance: IVABRADINE
     Indication: Product used for unknown indication
     Route: 065

REACTIONS (3)
  - Long QT syndrome [Fatal]
  - Torsade de pointes [Fatal]
  - Sudden cardiac death [Fatal]

NARRATIVE: CASE EVENT DATE: 20180101
